FAERS Safety Report 8885530 (Version 2)
Quarter: 2013Q1

REPORT INFORMATION
  Report Type: Spontaneous
  Country: US (occurrence: US)
  Receive Date: 20121102
  Receipt Date: 20130114
  Transmission Date: 20140127
  Serious: Yes (Disabling)
  Sender: FDA-Public Use
  Company Number: US-009507513-1210USA013867

PATIENT
  Sex: Male

DRUGS (4)
  1. PEG-INTRON [Suspect]
     Indication: HEPATITIS C
     Dosage: 120 MICROGRAM, QW
     Route: 058
     Dates: start: 20120724, end: 201210
  2. VICTRELIS [Suspect]
     Indication: HEPATITIS C
     Dosage: 800 MG, TID
     Route: 048
     Dates: start: 2012, end: 201210
  3. RIBAPAK [Suspect]
     Indication: HEPATITIS C
     Dosage: 600 MG, QAM
     Route: 048
     Dates: start: 2012, end: 201210
  4. RIBAPAK [Suspect]
     Dosage: 400 MG, QPM
     Route: 048
     Dates: start: 20120724, end: 201210

REACTIONS (3)
  - Quality of life decreased [Unknown]
  - Fatigue [Unknown]
  - Diabetes mellitus inadequate control [Unknown]
